FAERS Safety Report 5731775-7 (Version None)
Quarter: 2008Q2

REPORT INFORMATION
  Report Type: 
  Country: None (occurrence: None)
  Receive Date: 20080506
  Receipt Date: 20080422
  Transmission Date: 20081010
  Serious: No
  Sender: FDA-Public Use
  Company Number: 000755

PATIENT
  Age: 55 Year
  Sex: Male

DRUGS (8)
  1. PLETAL [Suspect]
     Indication: INTERMITTENT CLAUDICATION
     Dosage: 100 MG, BID ORAL
     Route: 048
     Dates: start: 20070416, end: 20070911
  2. ALPROSTADIL [Concomitant]
  3. LERCANIDIPINE [Concomitant]
  4. ALLOPURINOL [Concomitant]
  5. VESDIL 5 PLUS (HYDROCHLOROTHIAZIDE, RAMIPRIL) [Concomitant]
  6. BISOPROLOL FUMARATE [Concomitant]
  7. CLOPIDOGREL BISULFATE [Concomitant]
  8. PREGABALIN (PREGABALIN) [Concomitant]

REACTIONS (2)
  - CATARACT [None]
  - CONDITION AGGRAVATED [None]
